FAERS Safety Report 16401432 (Version 1)
Quarter: 2019Q2

REPORT INFORMATION
  Report Type: Spontaneous
  Country: PT (occurrence: PT)
  Receive Date: 20190606
  Receipt Date: 20190606
  Transmission Date: 20190711
  Serious: Yes (Death, Hospitalization)
  Sender: FDA-Public Use
  Company Number: PT-ALLERGAN-1923981US

PATIENT
  Sex: Female

DRUGS (5)
  1. PREDNISOLONE. [Suspect]
     Active Substance: PREDNISOLONE
     Indication: OLIGOARTHRITIS
     Dosage: 20 MG, QD
     Route: 065
  2. IRON DEXTRAN UNK [Suspect]
     Active Substance: IRON DEXTRAN
     Indication: PRODUCT USED FOR UNKNOWN INDICATION
     Dosage: UNK
     Route: 065
  3. WARFARIN [Suspect]
     Active Substance: WARFARIN
     Indication: PRODUCT USED FOR UNKNOWN INDICATION
     Dosage: UNK
     Route: 065
  4. CALCIUM CARBONATE. [Suspect]
     Active Substance: CALCIUM CARBONATE
     Indication: PRODUCT USED FOR UNKNOWN INDICATION
     Dosage: UNK
     Route: 065
  5. HEPARIN [Suspect]
     Active Substance: HEPARIN SODIUM
     Indication: RENAL IMPAIRMENT
     Dosage: UNK
     Route: 065

REACTIONS (3)
  - Septic shock [Fatal]
  - Calciphylaxis [Unknown]
  - Multiple organ dysfunction syndrome [Fatal]
